FAERS Safety Report 4467694-6 (Version None)
Quarter: 2004Q3

REPORT INFORMATION
  Report Type: 
  Country: None (occurrence: None)
  Receive Date: 20040929
  Receipt Date: 20040917
  Transmission Date: 20050211
  Serious: Yes (Hospitalization)
  Sender: FDA-Public Use
  Company Number: PAGL/04-07-USA

PATIENT
  Age: 78 Year
  Sex: Male
  Weight: 77.1115 kg

DRUGS (14)
  1. PANGLOBULIN [Suspect]
     Indication: CHRONIC INFLAMMATORY DEMYELINATING POLYRADICULONEUROPATHY
     Dosage: 30 G, I.V.
     Route: 042
     Dates: start: 20040825, end: 20040829
  2. DYAZIDE [Concomitant]
  3. PRILOSEC [Concomitant]
  4. NORVASC [Concomitant]
  5. CELEBREX [Concomitant]
  6. ZOCOR [Concomitant]
  7. CARDURA [Concomitant]
  8. ACETYLSALICYLIC ACID SRT [Concomitant]
  9. NEURONTIN [Concomitant]
  10. AMOXICILLIN [Concomitant]
  11. DAROVOCET (PROPACET) [Concomitant]
  12. AMBIEN [Concomitant]
  13. ALEVE [Concomitant]
  14. VIAGRA [Concomitant]

REACTIONS (7)
  - CHEST PAIN [None]
  - COUGH [None]
  - DYSPNOEA [None]
  - EXERCISE TOLERANCE DECREASED [None]
  - PALPITATIONS [None]
  - RENAL IMPAIRMENT [None]
  - WHITE BLOOD CELL COUNT DECREASED [None]
